FAERS Safety Report 17615161 (Version 1)
Quarter: 2020Q2

REPORT INFORMATION
  Report Type: Spontaneous
  Country: US (occurrence: US)
  Receive Date: 20200402
  Receipt Date: 20200402
  Transmission Date: 20200713
  Serious: Yes (Other)
  Sender: FDA-Public Use
  Company Number: US-PFIZER INC-2020103079

PATIENT
  Age: 69 Year
  Sex: Male
  Weight: 79.38 kg

DRUGS (7)
  1. CLONOPIN [Concomitant]
     Active Substance: CLONAZEPAM
     Indication: SUICIDAL IDEATION
  2. LYRICA [Suspect]
     Active Substance: PREGABALIN
     Dosage: 150 MG, 3X/DAY
     Route: 048
     Dates: start: 201908, end: 20191010
  3. VISTARIL [HYDROXYZINE HYDROCHLORIDE] [Concomitant]
     Indication: SUICIDAL IDEATION
  4. CLONOPIN [Concomitant]
     Active Substance: CLONAZEPAM
     Indication: PANIC ATTACK
     Dosage: 1 MG, AS NEEDED (3X/DAY AT THE WORST))
  5. LYRICA [Suspect]
     Active Substance: PREGABALIN
     Indication: PANIC ATTACK
     Dosage: 75 MG, 3X/DAY
     Route: 048
     Dates: start: 201906, end: 201908
  6. VISTARIL [HYDROXYZINE HYDROCHLORIDE] [Concomitant]
     Indication: PANIC ATTACK
     Dosage: 25 MG, 4X/DAY
  7. FENTANYL TRANSDERMAL SYSTEM [Concomitant]
     Active Substance: FENTANYL
     Indication: RESTLESS LEGS SYNDROME
     Dosage: 50 UG, UNK

REACTIONS (10)
  - Suicidal ideation [Not Recovered/Not Resolved]
  - Dizziness [Not Recovered/Not Resolved]
  - Overdose [Unknown]
  - Off label use [Unknown]
  - Burning sensation [Not Recovered/Not Resolved]
  - Product use in unapproved indication [Unknown]
  - Sneezing [Not Recovered/Not Resolved]
  - Nausea [Not Recovered/Not Resolved]
  - Myoclonus [Not Recovered/Not Resolved]
  - Panic attack [Not Recovered/Not Resolved]

NARRATIVE: CASE EVENT DATE: 201906
